FAERS Safety Report 8240178-5 (Version None)
Quarter: 2012Q1

REPORT INFORMATION
  Report Type: 
  Country: None (occurrence: None)
  Receive Date: 20120328
  Receipt Date: 20111014
  Transmission Date: 20120608
  Serious: No
  Sender: FDA-Public Use
  Company Number: US-PFIZER INC-K201101239

PATIENT
  Sex: Female
  Weight: 77.098 kg

DRUGS (1)
  1. SKELAXIN [Suspect]
     Indication: MUSCLE SPASMS
     Dosage: UNK
     Route: 048
     Dates: start: 20090101, end: 20090101

REACTIONS (1)
  - DRUG INEFFECTIVE [None]
